FAERS Safety Report 6323120-3 (Version None)
Quarter: 2009Q3

REPORT INFORMATION
  Report Type: 
  Country: None (occurrence: None)
  Receive Date: 20090818
  Receipt Date: 20090126
  Transmission Date: 20100115
  Serious: Yes (Hospitalization)
  Sender: FDA-Public Use
  Company Number: MEDI-0007819

PATIENT
  Age: 4 Month
  Sex: Female

DRUGS (4)
  1. SYNAGIS [Suspect]
     Indication: PREMATURE BABY
     Dosage: 49 MG, INTRAMUSCULAR
     Route: 030
     Dates: start: 20081211, end: 20090108
  2. PREVACID [Concomitant]
  3. POLYVISOL(EROGOCALCIFEROL, ASCORBIC ACID, THIAMINE, RETINOL, RIBOFLAVI [Concomitant]
  4. OXYGEN (OXYGEN) [Concomitant]

REACTIONS (2)
  - DYSPNOEA [None]
  - RESPIRATORY SYNCYTIAL VIRUS INFECTION [None]
